FAERS Safety Report 25636639 (Version 1)
Quarter: 2025Q3

REPORT INFORMATION
  Report Type: Spontaneous
  Country: CO (occurrence: CO)
  Receive Date: 20250804
  Receipt Date: 20250804
  Transmission Date: 20251021
  Serious: Yes (Other)
  Sender: IPSEN BIOPHARMACEUTICALS, INC.
  Company Number: CO-IPSEN Group, Research and Development-2025-16481

PATIENT
  Age: 52 Year
  Sex: Male

DRUGS (1)
  1. BOTULINUM TOXIN TYPE A [Suspect]
     Active Substance: BOTULINUM TOXIN TYPE A
     Indication: Torticollis

REACTIONS (4)
  - Encephalitis autoimmune [Unknown]
  - Condition aggravated [Unknown]
  - Dysarthria [Unknown]
  - Dysphagia [Unknown]
